FAERS Safety Report 11349865 (Version 2)
Quarter: 2015Q3

REPORT INFORMATION
  Report Type: Spontaneous
  Country: CH (occurrence: CH)
  Receive Date: 20150807
  Receipt Date: 20150807
  Transmission Date: 20151125
  Serious: Yes (Other)
  Sender: FDA-Public Use
  Company Number: CH-JNJFOC-20150722788

PATIENT
  Sex: Male

DRUGS (5)
  1. REMICADE [Suspect]
     Active Substance: INFLIXIMAB
     Indication: PSORIATIC ARTHROPATHY
     Route: 042
     Dates: start: 201503
  2. REMICADE [Suspect]
     Active Substance: INFLIXIMAB
     Indication: PSORIATIC ARTHROPATHY
     Route: 042
     Dates: start: 201411
  3. REMICADE [Suspect]
     Active Substance: INFLIXIMAB
     Indication: PSORIATIC ARTHROPATHY
     Route: 042
     Dates: start: 201501
  4. REMICADE [Suspect]
     Active Substance: INFLIXIMAB
     Indication: PSORIATIC ARTHROPATHY
     Route: 042
     Dates: start: 201412
  5. REMICADE [Suspect]
     Active Substance: INFLIXIMAB
     Indication: PSORIATIC ARTHROPATHY
     Route: 042
     Dates: start: 201410

REACTIONS (23)
  - Psoriatic arthropathy [Not Recovered/Not Resolved]
  - Dizziness [Unknown]
  - Somnolence [Unknown]
  - Trismus [Unknown]
  - Sensory disturbance [Unknown]
  - Oedema peripheral [Unknown]
  - Hyperhidrosis [Unknown]
  - Oropharyngeal pain [Unknown]
  - Sensation of foreign body [Unknown]
  - Feeling cold [Recovering/Resolving]
  - Toothache [Unknown]
  - Burning sensation [Unknown]
  - Pollakiuria [Unknown]
  - Paranasal sinus hypersecretion [Unknown]
  - Loss of consciousness [Recovered/Resolved]
  - Shock [Recovering/Resolving]
  - Neurosis [Unknown]
  - Anxiety [Recovering/Resolving]
  - Sensory disturbance [Unknown]
  - Headache [Unknown]
  - Agitation [Unknown]
  - Pain in extremity [Unknown]
  - Spinal pain [Unknown]

NARRATIVE: CASE EVENT DATE: 201410
